FAERS Safety Report 19390800 (Version 2)
Quarter: 2023Q2

REPORT INFORMATION
  Report Type: Spontaneous
  Country: ER (occurrence: ER)
  Receive Date: 20210608
  Receipt Date: 20230523
  Transmission Date: 20230721
  Serious: Yes (Other)
  Sender: FDA-Public Use
  Company Number: ER-NOVARTISPH-NVSC2021ER128842

PATIENT
  Sex: Female

DRUGS (2)
  1. DICLOFENAC [Suspect]
     Active Substance: DICLOFENAC
     Indication: Product used for unknown indication
     Dosage: UNK
     Route: 054
  2. BUPIVACAINE [Suspect]
     Active Substance: BUPIVACAINE
     Indication: Delivery
     Dosage: UNK
     Route: 008

REACTIONS (3)
  - Rhabdomyolysis [Recovered/Resolved]
  - Live birth [Unknown]
  - Exposure during pregnancy [Unknown]
